FAERS Safety Report 5008768-0 (Version None)
Quarter: 2006Q2

REPORT INFORMATION
  Report Type: 
  Country: None (occurrence: None)
  Receive Date: 20060523
  Receipt Date: 20060515
  Transmission Date: 20061013
  Serious: Yes (Other)
  Sender: FDA-Public Use
  Company Number: US-JNJFOC-20060503959

PATIENT
  Sex: Female

DRUGS (1)
  1. REMICADE [Suspect]
     Indication: CROHN'S DISEASE
     Route: 042

REACTIONS (5)
  - BLOOD PRESSURE DECREASED [None]
  - ERYTHEMA [None]
  - INFUSION RELATED REACTION [None]
  - PALPITATIONS [None]
  - THROAT TIGHTNESS [None]
